FAERS Safety Report 8327144-6 (Version None)
Quarter: 2012Q2

REPORT INFORMATION
  Report Type: 
  Country: None (occurrence: None)
  Receive Date: 20120501
  Receipt Date: 20120418
  Transmission Date: 20120825
  Serious: Yes (Hospitalization, Other)
  Sender: FDA-Public Use
  Company Number: US-BAXTER-2012BAX003354

PATIENT
  Sex: Male

DRUGS (3)
  1. GAMMAGARD LIQUID [Suspect]
     Indication: STEVENS-JOHNSON SYNDROME
     Route: 042
  2. GAMMAGARD LIQUID [Suspect]
  3. GAMMAGARD LIQUID [Suspect]
     Indication: TOXIC EPIDERMAL NECROLYSIS

REACTIONS (1)
  - GENERALISED OEDEMA [None]
